FAERS Safety Report 5371769-7 (Version None)
Quarter: 2007Q2

REPORT INFORMATION
  Report Type: 
  Country: None (occurrence: None)
  Receive Date: 20070625
  Receipt Date: 20070612
  Transmission Date: 20071010
  Serious: Yes (Hospitalization)
  Sender: FDA-Public Use
  Company Number: 060001L07TUR

PATIENT
  Age: 28 Year
  Sex: Female

DRUGS (1)
  1. CLOMIPHENE CITRATE [Suspect]
     Indication: OVULATION INDUCTION
     Dates: start: 20040101

REACTIONS (12)
  - ABDOMINAL PAIN UPPER [None]
  - DUODENITIS [None]
  - FLUID RETENTION [None]
  - GASTRITIS EROSIVE [None]
  - NAUSEA [None]
  - OEDEMA [None]
  - PANCREATIC DISORDER [None]
  - PANCREATITIS [None]
  - PANCREATITIS ACUTE [None]
  - PLEURAL EFFUSION [None]
  - POLYCYSTIC OVARIES [None]
  - VOMITING [None]
